FAERS Safety Report 8871401 (Version 1)
Quarter: 2012Q4

REPORT INFORMATION
  Report Type: Report from Study
  Country: GB (occurrence: GB)
  Receive Date: 20121029
  Receipt Date: 20121029
  Transmission Date: 20130627
  Serious: Yes (Death)
  Sender: FDA-Public Use
  Company Number: GB-ROCHE-1149606

PATIENT
  Age: 78 Year
  Sex: Male
  Weight: 73.4 kg

DRUGS (5)
  1. BEVACIZUMAB [Suspect]
     Indication: COLON CANCER
     Dosage: stopped on 10/Oct/2012
     Route: 042
     Dates: start: 20121010
  2. BEVACIZUMAB [Suspect]
     Indication: RECTAL CANCER
  3. CAPECITABINE [Suspect]
     Indication: CHEMOTHERAPY
     Dosage: BD for 2 weeks of a 3 week cycle
     Route: 048
     Dates: start: 20121010
  4. OXALIPLATIN [Concomitant]
     Indication: CHEMOTHERAPY
     Route: 042
     Dates: start: 20121010, end: 20121010
  5. ONDANSETRON [Concomitant]
     Indication: NAUSEA
     Route: 048
     Dates: start: 20121010, end: 20121011

REACTIONS (1)
  - Cardiac arrest [Fatal]
